FAERS Safety Report 7723795-8 (Version None)
Quarter: 2011Q3

REPORT INFORMATION
  Report Type: 
  Country: None (occurrence: None)
  Receive Date: 20110826
  Receipt Date: 20110812
  Transmission Date: 20111222
  Serious: Yes (Hospitalization)
  Sender: FDA-Public Use
  Company Number: US-2011-10543

PATIENT
  Age: 64 Year
  Sex: Female

DRUGS (4)
  1. BUSULFAN [Suspect]
     Indication: STEM CELL TRANSPLANT
     Dosage: 51 MG MILLIGRAM(S), DAILY DOSE, INTRAVENOUS    197 MG MILLIGRAM(S), DAILY DOSE, INTRAVENOUS
     Route: 042
     Dates: start: 20110705, end: 20110708
  2. BUSULFAN [Suspect]
     Indication: STEM CELL TRANSPLANT
     Dosage: 51 MG MILLIGRAM(S), DAILY DOSE, INTRAVENOUS    197 MG MILLIGRAM(S), DAILY DOSE, INTRAVENOUS
     Route: 042
     Dates: start: 20110629, end: 20110629
  3. ETOPOSIDE [Concomitant]
  4. CYCLOPHOSPHAMIDE [Concomitant]

REACTIONS (16)
  - CARDIOMYOPATHY [None]
  - CARDIOMEGALY [None]
  - DECREASED APPETITE [None]
  - MITRAL VALVE INCOMPETENCE [None]
  - CARDIAC FAILURE CONGESTIVE [None]
  - PLEURAL EFFUSION [None]
  - DIARRHOEA [None]
  - CHOLELITHIASIS [None]
  - PERICARDIAL EFFUSION [None]
  - CONDITION AGGRAVATED [None]
  - ANAEMIA [None]
  - HYPOTHYROIDISM [None]
  - KIDNEY SMALL [None]
  - PULMONARY OEDEMA [None]
  - THROMBOCYTOPENIA [None]
  - ASCITES [None]
